FAERS Safety Report 5087204-2 (Version None)
Quarter: 2006Q3

REPORT INFORMATION
  Report Type: 
  Country: None (occurrence: None)
  Receive Date: 20060821
  Receipt Date: 20060808
  Transmission Date: 20061208
  Serious: Yes (Hospitalization)
  Sender: FDA-Public Use
  Company Number: CIP06001810

PATIENT
  Age: 68 Year
  Sex: Female

DRUGS (6)
  1. DIDRONEL [Suspect]
     Indication: OSTEOPOROSIS
     Dosage: 200 MG, ORAL
     Route: 048
     Dates: start: 20060626, end: 20060709
  2. ADALAT [Concomitant]
  3. PREDNISOLONE [Concomitant]
  4. ISONIAZID [Concomitant]
  5. FAMOTIDINE [Concomitant]
  6. LIPITOR [Concomitant]

REACTIONS (4)
  - BLOOD LACTATE DEHYDROGENASE INCREASED [None]
  - C-REACTIVE PROTEIN INCREASED [None]
  - CARCINOEMBRYONIC ANTIGEN INCREASED [None]
  - THROMBOCYTOPENIA [None]
